FAERS Safety Report 5169204-7 (Version None)
Quarter: 2006Q4

REPORT INFORMATION
  Report Type: 
  Country: None (occurrence: None)
  Receive Date: 20061201
  Receipt Date: 20061123
  Transmission Date: 20070319
  Serious: Yes (Other)
  Sender: FDA-Public Use
  Company Number: 2006144592

PATIENT
  Age: 30 Year
  Sex: Female

DRUGS (1)
  1. FRAGMIN [Suspect]
     Indication: DEEP VEIN THROMBOSIS
     Dosage: 10000 I.U. (10000 I.U., 1 IN 1 D), SUBCUTANEOUS
     Route: 058
     Dates: start: 20060401

REACTIONS (1)
  - PULMONARY EMBOLISM [None]
